FAERS Safety Report 6983431-5 (Version None)
Quarter: 2010Q3

REPORT INFORMATION
  Report Type: 
  Country: None (occurrence: None)
  Receive Date: 20100913
  Receipt Date: 20100913
  Transmission Date: 20110219
  Serious: Yes (Other)
  Sender: FDA-Public Use
  Company Number: None

PATIENT
  Sex: Male
  Weight: 103.8737 kg

DRUGS (2)
  1. NORVASC [Suspect]
     Dosage: 10MG ONE QD ORAL
     Route: 048
  2. TOPROL-XL [Suspect]
     Dosage: 100MG ONE QD ORAL
     Route: 048

REACTIONS (1)
  - RASH [None]
